FAERS Safety Report 5940470-0 (Version None)
Quarter: 2008Q4

REPORT INFORMATION
  Report Type: 
  Country: None (occurrence: None)
  Receive Date: 20081103
  Receipt Date: 20081103
  Transmission Date: 20090506
  Serious: No
  Sender: FDA-Public Use
  Company Number: None

PATIENT
  Age: 39 Year
  Sex: Female

DRUGS (2)
  1. TACROLIMUS [Suspect]
     Dosage: CAPSULE
  2. PROGRAF [Suspect]
     Dosage: CAPSULE

REACTIONS (5)
  - COMPLICATIONS OF TRANSPLANTED KIDNEY [None]
  - DRUG DISPENSING ERROR [None]
  - IMMUNOSUPPRESSANT DRUG LEVEL DECREASED [None]
  - INTENTIONAL DRUG MISUSE [None]
  - MEDICATION ERROR [None]
